FAERS Safety Report 14491344 (Version 1)
Quarter: 2018Q1

REPORT INFORMATION
  Report Type: Spontaneous
  Country: US (occurrence: US)
  Receive Date: 20180206
  Receipt Date: 20180206
  Transmission Date: 20180509
  Serious: Yes (Hospitalization)
  Sender: FDA-Public Use
  Company Number: PHEH2018US003539

PATIENT
  Age: 75 Year
  Sex: Male
  Weight: 81.63 kg

DRUGS (1)
  1. IMIQUIMOD. [Suspect]
     Active Substance: IMIQUIMOD
     Indication: PROPHYLAXIS
     Dosage: UNK
     Route: 065
     Dates: start: 20180101

REACTIONS (2)
  - Anxiety [Not Recovered/Not Resolved]
  - Rash [Recovering/Resolving]

NARRATIVE: CASE EVENT DATE: 201801
